FAERS Safety Report 25274065 (Version 2)
Quarter: 2025Q2

REPORT INFORMATION
  Report Type: Spontaneous
  Country: HU (occurrence: HU)
  Receive Date: 20250506
  Receipt Date: 20250508
  Transmission Date: 20250717
  Serious: Yes (Other)
  Sender: BAYER HEALTHCARE PHARMACEUTICALS INC.
  Company Number: HU-BAYER-2025A056299

PATIENT
  Sex: Female

DRUGS (4)
  1. MIRENA [Suspect]
     Active Substance: LEVONORGESTREL
     Dosage: 20?G/DAY
     Route: 015
     Dates: start: 202501
  2. NEOMYCIN [Concomitant]
     Active Substance: NEOMYCIN
  3. OFLOXACIN [Concomitant]
     Active Substance: OFLOXACIN
     Dosage: 200 MG, QD
  4. SEASONIQUE [Concomitant]
     Active Substance: ETHINYL ESTRADIOL\LEVONORGESTREL

REACTIONS (9)
  - Cervix haemorrhage uterine [None]
  - Abdominal pain lower [None]
  - Genital haemorrhage [None]
  - Vaginal discharge [None]
  - Coital bleeding [None]
  - Intermenstrual bleeding [None]
  - Amenorrhoea [None]
  - Malaise [None]
  - Nausea [None]

NARRATIVE: CASE EVENT DATE: 20250101
